FAERS Safety Report 19007244 (Version 2)
Quarter: 2022Q1

REPORT INFORMATION
  Report Type: Report from Study
  Country: FR (occurrence: FR)
  Receive Date: 20210315
  Receipt Date: 20220304
  Transmission Date: 20220424
  Serious: Yes (Hospitalization)
  Sender: FDA-Public Use
  Company Number: FR-SERVIER-S20011072

PATIENT
  Age: 62 Year
  Sex: Male
  Weight: 85 kg

DRUGS (8)
  1. LONSURF [Suspect]
     Active Substance: TIPIRACIL HYDROCHLORIDE\TRIFLURIDINE
     Indication: Colorectal cancer metastatic
     Dosage: 120 MG, DAILY
     Route: 048
     Dates: start: 20200224
  2. LONSURF [Suspect]
     Active Substance: TIPIRACIL HYDROCHLORIDE\TRIFLURIDINE
     Dosage: 120 MG, DAILY
     Route: 048
     Dates: start: 20200914, end: 20200927
  3. LONSURF [Suspect]
     Active Substance: TIPIRACIL HYDROCHLORIDE\TRIFLURIDINE
     Dosage: 120 MG, DAILY
     Route: 048
     Dates: start: 20201019, end: 20201106
  4. FILGRASTIM [Concomitant]
     Active Substance: FILGRASTIM
     Indication: Anaemia
     Dosage: 30 MU, QD
     Route: 065
     Dates: start: 20200214
  5. MOVICOL [Concomitant]
     Active Substance: POLYETHYLENE GLYCOL 3350\POTASSIUM CHLORIDE\SODIUM BICARBONATE\SODIUM CHLORIDE
     Indication: Constipation
     Dosage: 1 DF, QD
     Route: 048
     Dates: start: 2020
  6. ACETAMINOPHEN [Concomitant]
     Active Substance: ACETAMINOPHEN
     Indication: Pain
     Dosage: 1 G, PRN
     Route: 048
     Dates: start: 2020
  7. ZOPICLONE [Concomitant]
     Active Substance: ZOPICLONE
     Indication: Sciatica
     Dosage: 75 MG, QD
     Route: 048
     Dates: start: 2020
  8. NEUROTIN [Concomitant]
     Active Substance: GABAPENTIN
     Indication: Sciatica
     Dosage: 300 MG, TID
     Route: 048
     Dates: start: 2020

REACTIONS (2)
  - Iron deficiency [Recovered/Resolved]
  - Anaemia [Recovering/Resolving]

NARRATIVE: CASE EVENT DATE: 20201012
